FAERS Safety Report 5593361-1 (Version None)
Quarter: 2008Q1

REPORT INFORMATION
  Report Type: 
  Country: None (occurrence: None)
  Receive Date: 20080114
  Receipt Date: 20071231
  Transmission Date: 20080703
  Serious: Yes (Death)
  Sender: FDA-Public Use
  Company Number: 2008000875

PATIENT
  Age: 32 Year
  Sex: Female

DRUGS (11)
  1. DIPHENHYDRAMINE HCL [Suspect]
     Dosage: ORAL
     Route: 048
  2. ACETAMINOPHEN [Suspect]
     Dosage: ORAL
     Route: 048
  3. CYCLOBENZAPRINE HYDROCHLORIDE [Suspect]
     Dosage: ORAL
     Route: 048
  4. OXYCODONE HCL [Suspect]
     Dosage: ORAL
     Route: 048
  5. DRUG, UNSPECIFIED (DRUG, UNSPECIFIED) [Suspect]
     Dosage: ORAL
     Route: 048
  6. VERAPAMIL [Suspect]
     Dosage: ORAL
     Route: 048
  7. PROMETHAZINE [Suspect]
     Dosage: ORAL
     Route: 048
  8. TEMAZEPAM [Suspect]
     Dosage: ORAL
     Route: 048
  9. ZOLPIDEM TARTRATE [Suspect]
     Dosage: ORAL
     Route: 048
  10. CARISOPRODOL [Suspect]
     Dosage: ORAL
     Route: 048
  11. MORPHINE [Suspect]
     Dosage: ORAL
     Route: 048

REACTIONS (2)
  - CARDIAC ARREST [None]
  - RESPIRATORY ARREST [None]
